FAERS Safety Report 17072235 (Version 1)
Quarter: 2019Q4

REPORT INFORMATION
  Report Type: Spontaneous
  Country: BR (occurrence: BR)
  Receive Date: 20191125
  Receipt Date: 20191125
  Transmission Date: 20200122
  Serious: Yes (Other)
  Sender: FDA-Public Use
  Company Number: BR-ELI_LILLY_AND_COMPANY-BR201911003821

PATIENT
  Sex: Female

DRUGS (1)
  1. BASAGLAR [Suspect]
     Active Substance: INSULIN GLARGINE
     Indication: DIABETES MELLITUS
     Dosage: 28 INTERNATIONAL UNIT, UNKNOWN
     Route: 065
     Dates: start: 2019

REACTIONS (4)
  - Neoplasm malignant [Unknown]
  - Incorrect product administration duration [Unknown]
  - Blood glucose increased [Unknown]
  - Drug ineffective [Unknown]
